FAERS Safety Report 10264301 (Version 1)
Quarter: 2014Q2

REPORT INFORMATION
  Report Type: Spontaneous
  Country: TR (occurrence: TR)
  Receive Date: 20140627
  Receipt Date: 20140627
  Transmission Date: 20141212
  Serious: Yes (Other)
  Sender: FDA-Public Use
  Company Number: PHHY2014TR074619

PATIENT
  Age: 45 Year
  Sex: Male

DRUGS (1)
  1. VALACICLOVIR [Suspect]
     Dosage: 2000 MG, UNK
     Route: 048

REACTIONS (5)
  - Hepatitis toxic [Recovered/Resolved]
  - Gamma-glutamyltransferase [Recovered/Resolved]
  - Alanine aminotransferase increased [Recovered/Resolved]
  - Aspartate aminotransferase increased [Recovered/Resolved]
  - Blood lactate dehydrogenase increased [Recovered/Resolved]
